FAERS Safety Report 9646252 (Version 1)
Quarter: 2013Q4

REPORT INFORMATION
  Report Type: Spontaneous
  Country: IT (occurrence: IT)
  Receive Date: 20131025
  Receipt Date: 20131025
  Transmission Date: 20140711
  Serious: Yes (Death, Other)
  Sender: FDA-Public Use
  Company Number: IT-MYLANLABS-2013S1023267

PATIENT
  Age: 40 Year
  Sex: Male

DRUGS (2)
  1. QUETIAPINE [Suspect]
     Indication: PSYCHOTIC DISORDER
     Dosage: 200MG X 2 + 300MG IN THE EVENING
     Route: 065
  2. CLOZAPINE [Suspect]
     Indication: PSYCHOTIC DISORDER
     Dosage: 100MG/ML, 15 DROPS IN THE EVENING
     Route: 065

REACTIONS (3)
  - Constipation [Not Recovered/Not Resolved]
  - Ileus paralytic [Not Recovered/Not Resolved]
  - Conduction disorder [Fatal]
